FAERS Safety Report 10628855 (Version 2)
Quarter: 2014Q4

REPORT INFORMATION
  Report Type: Spontaneous
  Country: US (occurrence: US)
  Receive Date: 20141205
  Receipt Date: 20141205
  Transmission Date: 20150529
  Serious: No
  Sender: FDA-Public Use
  Company Number: US-BRISTOL-MYERS SQUIBB COMPANY-21504675

PATIENT
  Age: 66 Year
  Sex: Male
  Weight: 119.27 kg

DRUGS (1)
  1. COUMADIN [Suspect]
     Active Substance: WARFARIN SODIUM
     Indication: CARDIAC FAILURE CONGESTIVE
     Dosage: 5MG;5 DAYS/WEEK;7.5MG/2DAYS

REACTIONS (4)
  - International normalised ratio fluctuation [Unknown]
  - Haemorrhage [Unknown]
  - Weight decreased [Unknown]
  - Drug ineffective [Unknown]
